FAERS Safety Report 9781646 (Version 2)
Quarter: 2014Q1

REPORT INFORMATION
  Report Type: Spontaneous
  Country: US (occurrence: US)
  Receive Date: 20131224
  Receipt Date: 20140128
  Transmission Date: 20141002
  Serious: Yes (Other)
  Sender: FDA-Public Use
  Company Number: CHPA2013US018478

PATIENT
  Age: 24 Year
  Sex: Female

DRUGS (4)
  1. EXCEDRIN EXTRA STRENGTH [Suspect]
     Indication: ABDOMINAL PAIN UPPER
     Dosage: 1 TO 2 UNK, UNK
     Route: 048
     Dates: start: 201201, end: 20131213
  2. EXCEDRIN EXTRA STRENGTH [Suspect]
     Indication: CHEST PAIN
  3. EXCEDRIN EXTRA STRENGTH [Suspect]
     Indication: OFF LABEL USE
  4. EXCEDRIN EXTRA STRENGTH [Suspect]
     Indication: HEADACHE

REACTIONS (7)
  - Kidney infection [Recovering/Resolving]
  - Headache [Unknown]
  - Abdominal pain upper [Unknown]
  - Chest pain [Unknown]
  - Drug ineffective for unapproved indication [Unknown]
  - Underdose [Unknown]
  - Drug ineffective [Unknown]
